FAERS Safety Report 6818754-3 (Version None)
Quarter: 2010Q3

REPORT INFORMATION
  Report Type: 
  Country: None (occurrence: None)
  Receive Date: 20100706
  Receipt Date: 20100629
  Transmission Date: 20110219
  Serious: Yes (Other)
  Sender: FDA-Public Use
  Company Number: JP-AMGEN-KDC406727

PATIENT
  Sex: Female

DRUGS (3)
  1. DENOSUMAB [Suspect]
     Indication: METASTASES TO BONE
     Route: 058
     Dates: start: 20090730
  2. NAVELBINE [Concomitant]
     Route: 065
     Dates: start: 20090518
  3. DEXALTIN OINT [Concomitant]
     Route: 065
     Dates: start: 20090618, end: 20091115

REACTIONS (1)
  - OSTEONECROSIS OF JAW [None]
